FAERS Safety Report 10223059 (Version 1)
Quarter: 2014Q2

REPORT INFORMATION
  Report Type: Spontaneous
  Country: US (occurrence: None)
  Receive Date: 20140605
  Receipt Date: 20140605
  Transmission Date: 20141212
  Serious: Yes (Hospitalization)
  Sender: FDA-Public Use
  Company Number: UNT-2014-000762

PATIENT
  Age: 33 Year
  Sex: Female
  Weight: 89.3 kg

DRUGS (3)
  1. REMODULIN (TREPROSTINIL SODIUM) INJECTION, 5 MG/ML [Suspect]
     Indication: COR PULMONALE CHRONIC
     Route: 041
     Dates: start: 20111231
  2. LETAIRIS (AMBRISENTAN) [Concomitant]
  3. COUMADIN (WARFARIN SODIUM) [Concomitant]

REACTIONS (1)
  - Lung transplant [None]
